FAERS Safety Report 20680147 (Version 2)
Quarter: 2022Q2

REPORT INFORMATION
  Report Type: Spontaneous
  Country: GB (occurrence: GB)
  Receive Date: 20220406
  Receipt Date: 20220408
  Transmission Date: 20220721
  Serious: Yes (Other)
  Sender: FDA-Public Use
  Company Number: GB-009507513-2204GBR000864

PATIENT
  Sex: Male

DRUGS (1)
  1. PIFELTRO [Suspect]
     Active Substance: DORAVIRINE
     Dosage: UNK
     Route: 048

REACTIONS (1)
  - Chemotherapy [Unknown]
